FAERS Safety Report 23544018 (Version 1)
Quarter: 2024Q1

REPORT INFORMATION
  Report Type: Spontaneous
  Country: US (occurrence: None)
  Receive Date: 20240216
  Receipt Date: 20240216
  Transmission Date: 20240409
  Serious: Yes (Other)
  Sender: FDA-Public Use
  Company Number: None

PATIENT
  Age: 43 Year
  Sex: Female
  Weight: 81.9 kg

DRUGS (15)
  1. QELBREE [Suspect]
     Active Substance: VILOXAZINE HYDROCHLORIDE
     Indication: Attention deficit hyperactivity disorder
     Dosage: OTHER QUANTITY : 1 CAPSULE(S);?
     Route: 048
     Dates: start: 20240206, end: 20240211
  2. TIZANIDINE [Suspect]
     Active Substance: TIZANIDINE
  3. METFORMIN [Concomitant]
     Active Substance: METFORMIN HYDROCHLORIDE
  4. GABAPENTIN [Concomitant]
     Active Substance: GABAPENTIN
  5. QUETIAPINE [Concomitant]
     Active Substance: QUETIAPINE
  6. PANTOPRAZOLE [Concomitant]
     Active Substance: PANTOPRAZOLE
  7. tizanidine(not while on Qelbree) [Concomitant]
  8. CETIRIZINE [Concomitant]
     Active Substance: CETIRIZINE HYDROCHLORIDE
  9. TRELEGY ELLIPTA [Concomitant]
     Active Substance: FLUTICASONE FUROATE\UMECLIDINIUM BROMIDE\VILANTEROL TRIFENATATE
  10. ALBUTEROL [Concomitant]
     Active Substance: ALBUTEROL
  11. VARENICLINE [Concomitant]
     Active Substance: VARENICLINE
  12. L-methyl folate [Concomitant]
  13. VITAMIN D [Concomitant]
     Active Substance: VITAMIN D NOS
  14. BIOTIN [Concomitant]
     Active Substance: BIOTIN
  15. IBUPROFEN [Concomitant]
     Active Substance: IBUPROFEN

REACTIONS (11)
  - Somnolence [None]
  - Nausea [None]
  - Abdominal pain upper [None]
  - Migraine [None]
  - Vomiting [None]
  - Pyrexia [None]
  - Chest pain [None]
  - Headache [None]
  - Drug interaction [None]
  - Abdominal distension [None]
  - Constipation [None]

NARRATIVE: CASE EVENT DATE: 20240211
